FAERS Safety Report 12706830 (Version 1)
Quarter: 2016Q3

REPORT INFORMATION
  Report Type: Spontaneous
  Country: BR (occurrence: BR)
  Receive Date: 20160901
  Receipt Date: 20160901
  Transmission Date: 20161109
  Serious: Yes (Hospitalization, Other)
  Sender: FDA-Public Use
  Company Number: BR-GLAXOSMITHKLINE-BR2016GSK124921

PATIENT
  Age: 15 Year
  Sex: Female
  Weight: 50 kg

DRUGS (4)
  1. NORFLOXACIN [Suspect]
     Active Substance: NORFLOXACIN
     Indication: PRODUCT USED FOR UNKNOWN INDICATION
     Dosage: 2 DF, SINGLE (TABLET)
     Route: 048
  2. CIPROFLOXACIN. [Suspect]
     Active Substance: CIPROFLOXACIN
     Indication: PRODUCT USED FOR UNKNOWN INDICATION
     Dosage: 4 DF, SINGLE (TABLET)
     Route: 048
     Dates: start: 20160823, end: 20160823
  3. ZINNAT [Suspect]
     Active Substance: CEFUROXIME AXETIL
     Indication: PRODUCT USED FOR UNKNOWN INDICATION
     Dosage: 1 DF, SINGLE (TABLET)
     Route: 048
     Dates: start: 20160823, end: 20160823
  4. DEXCLORFENIRAMINE [Suspect]
     Active Substance: DEXCHLORPHENIRAMINE
     Dosage: 5 DF, SINGLE (TABLET)
     Route: 048

REACTIONS (3)
  - Drug abuse [Recovered/Resolved]
  - Somnolence [Not Recovered/Not Resolved]
  - Suicide attempt [Recovered/Resolved]

NARRATIVE: CASE EVENT DATE: 20160823
